FAERS Safety Report 16451788 (Version 1)
Quarter: 2019Q2

REPORT INFORMATION
  Report Type: Spontaneous
  Country: JP (occurrence: JP)
  Receive Date: 20190619
  Receipt Date: 20190619
  Transmission Date: 20190711
  Serious: Yes (Death, Hospitalization)
  Sender: FDA-Public Use
  Company Number: JP-CELGENEUS-JPN-20180802128

PATIENT
  Age: 88 Year
  Sex: Male
  Weight: 47 kg

DRUGS (40)
  1. DONEPEZIL HYDROCHLORIDE. [Concomitant]
     Active Substance: DONEPEZIL HYDROCHLORIDE
     Indication: DEMENTIA
     Dosage: 3 MILLIGRAM
     Route: 065
  2. DONEPEZIL HYDROCHLORIDE. [Concomitant]
     Active Substance: DONEPEZIL HYDROCHLORIDE
     Indication: DEMENTIA ALZHEIMER^S TYPE
  3. FUROSEMIDE. [Concomitant]
     Active Substance: FUROSEMIDE
     Indication: PLEURAL EFFUSION
     Dosage: 20 MILLIGRAM
     Route: 065
     Dates: start: 20180723
  4. VERAPAMIL HCL [Concomitant]
     Active Substance: VERAPAMIL HYDROCHLORIDE
     Dosage: 80 MILLIGRAM
     Route: 065
     Dates: start: 20180927
  5. LEVOTHYROXINE. [Concomitant]
     Active Substance: LEVOTHYROXINE
     Dosage: 25 MICROGRAM
     Route: 065
  6. TAKECAB [Concomitant]
     Active Substance: VONOPRAZAN FUMURATE
     Indication: PRODUCT USED FOR UNKNOWN INDICATION
     Dosage: 10 MILLIGRAM
     Route: 065
     Dates: start: 20180712
  7. FEBURIC [Concomitant]
     Active Substance: FEBUXOSTAT
     Indication: TUMOUR LYSIS SYNDROME
     Dosage: 60 MILLIGRAM
     Route: 065
     Dates: start: 20180722
  8. GRANISETRON [Concomitant]
     Active Substance: GRANISETRON
     Indication: PROPHYLAXIS OF NAUSEA AND VOMITING
     Dosage: 1 MILLIGRAM
     Route: 065
     Dates: start: 20180723
  9. MAXIPIME [Concomitant]
     Active Substance: CEFEPIME HYDROCHLORIDE
     Indication: PRODUCT USED FOR UNKNOWN INDICATION
     Route: 065
     Dates: start: 20180727, end: 20180729
  10. AMLODIPINE [Concomitant]
     Active Substance: AMLODIPINE BESYLATE
     Indication: HYPERTENSION
     Dosage: 10 MILLIGRAM
     Route: 065
  11. VORICONAZOLE. [Concomitant]
     Active Substance: VORICONAZOLE
     Dosage: 300 MILLIGRAM
     Route: 065
     Dates: start: 20180724
  12. NORADRENALINE [Concomitant]
     Active Substance: NOREPINEPHRINE
     Indication: PRODUCT USED FOR UNKNOWN INDICATION
     Route: 065
  13. LIMAPROST ALFADEX [Concomitant]
     Active Substance: LIMAPROST
     Indication: SPINAL STENOSIS
     Dosage: 15 MICROGRAM
     Route: 065
  14. RECOMODULIN [Concomitant]
     Active Substance: THROMBOMODULIN ALFA
     Dosage: 7680 IU (INTERNATIONAL UNIT)
     Route: 065
     Dates: start: 20180712
  15. POTASSIUM CHLORIDE. [Concomitant]
     Active Substance: POTASSIUM CHLORIDE
     Indication: HYPOKALAEMIA
     Dosage: 200 MILLIEQUIVALENTS
     Route: 065
     Dates: start: 20180725
  16. CARPERITIDE [Concomitant]
     Active Substance: CARPERITIDE
     Indication: ATRIAL FIBRILLATION
  17. LEVOTHYROXINE. [Concomitant]
     Active Substance: LEVOTHYROXINE
     Indication: HYPOTHYROIDISM
     Dosage: 50 MICROGRAM
     Route: 065
  18. GRANISETRON [Concomitant]
     Active Substance: GRANISETRON
     Indication: PROPHYLAXIS OF NAUSEA AND VOMITING
  19. BICARBONATED RINGER^S SOLUTION [Concomitant]
     Indication: BLOOD PRESSURE MEASUREMENT
     Dosage: 1000 MILLILITER
     Route: 065
     Dates: start: 20180921
  20. GLYCYRON [Concomitant]
     Indication: HEPATIC FUNCTION ABNORMAL
     Dosage: 6 DOSAGE FORMS
     Route: 065
     Dates: start: 20190606
  21. RELVAR [Concomitant]
     Active Substance: FLUTICASONE FUROATE\VILANTEROL TRIFENATATE
     Indication: CHRONIC OBSTRUCTIVE PULMONARY DISEASE
     Route: 065
  22. RECOMODULIN [Concomitant]
     Active Substance: THROMBOMODULIN ALFA
     Indication: PRODUCT USED FOR UNKNOWN INDICATION
     Dosage: 19200 IU (INTERNATIONAL UNIT)
     Route: 065
     Dates: start: 20180712
  23. SPIRONOLACTONE. [Concomitant]
     Active Substance: SPIRONOLACTONE
     Indication: PLEURAL EFFUSION
     Dosage: 50 MILLIGRAM
     Route: 065
     Dates: start: 20180723
  24. VERAPAMIL HCL [Concomitant]
     Active Substance: VERAPAMIL HYDROCHLORIDE
     Indication: ATRIAL FIBRILLATION
     Route: 065
     Dates: start: 20180725
  25. VERAPAMIL HCL [Concomitant]
     Active Substance: VERAPAMIL HYDROCHLORIDE
     Dosage: 10 MILLIGRAM
     Route: 065
     Dates: start: 20180921
  26. POLARAMINE [Concomitant]
     Active Substance: DEXCHLORPHENIRAMINE MALEATE
     Indication: ALLERGIC TRANSFUSION REACTION
     Dosage: 10 MILLIGRAM
     Route: 065
     Dates: start: 20180714
  27. VORICONAZOLE. [Concomitant]
     Active Substance: VORICONAZOLE
     Dosage: 400 MILLIGRAM
     Route: 065
     Dates: start: 20180724
  28. NORMAL SALINE [Concomitant]
     Active Substance: SODIUM CHLORIDE
     Indication: PRODUCT USED FOR UNKNOWN INDICATION
     Route: 065
     Dates: start: 20181001, end: 20181007
  29. AZACITIDINE. [Suspect]
     Active Substance: AZACITIDINE
     Indication: ACUTE MYELOID LEUKAEMIA
     Dosage: 110 MILLIGRAM
     Route: 041
     Dates: start: 20180723, end: 20180729
  30. CARPERITIDE [Concomitant]
     Active Substance: CARPERITIDE
     Indication: CARDIAC FAILURE
     Dosage: 4000 MICROGRAM
     Route: 065
     Dates: start: 20180725
  31. TOLVAPTAN [Concomitant]
     Active Substance: TOLVAPTAN
     Indication: PRODUCT USED FOR UNKNOWN INDICATION
     Route: 065
     Dates: start: 20180801
  32. VORICONAZOLE. [Concomitant]
     Active Substance: VORICONAZOLE
     Indication: ASPERGILLUS INFECTION
     Dosage: 200 MILLIGRAM
     Route: 065
     Dates: start: 20180724
  33. PAREPLUS [Concomitant]
     Active Substance: AMINO ACIDS\DEXTROSE\ELECTROLYTES NOS\VITAMINS
     Indication: NUTRITIONAL SUPPLEMENTATION
     Dosage: 500 MILLILITER
     Route: 065
     Dates: start: 20180726
  34. AZACITIDINE. [Suspect]
     Active Substance: AZACITIDINE
     Dosage: 110 MILLIGRAM
     Route: 041
     Dates: start: 20180903, end: 20180909
  35. AZACITIDINE. [Suspect]
     Active Substance: AZACITIDINE
     Dosage: 110 MILLIGRAM
     Route: 041
     Dates: start: 20181001, end: 20181007
  36. PILSICAINIDE HYDROCHLORIDE HYDRATE [Concomitant]
     Active Substance: PILSICAINIDE HYDROCHLORIDE HEMIHYDRATE
     Indication: ATRIAL FIBRILLATION
     Dosage: 50 MILLIGRAM
     Route: 065
     Dates: start: 20180725
  37. CARBAZOCHROME [Concomitant]
     Active Substance: CARBAZOCHROME
     Indication: CHRONIC OBSTRUCTIVE PULMONARY DISEASE
     Dosage: 100 MILLIGRAM
     Route: 065
     Dates: start: 20180712
  38. HYDROCORTISONE SODIUM SUCCINATE [Concomitant]
     Active Substance: HYDROCORTISONE SODIUM SUCCINATE
     Indication: ALLERGIC TRANSFUSION REACTION
     Dosage: 200 MILLIGRAM
     Route: 065
     Dates: start: 20180722
  39. LEVOFLOXACIN HEMIHYDRATE [Concomitant]
     Active Substance: LEVOFLOXACIN
     Indication: BACTERIAL INFECTION
     Dosage: 25 MILLIGRAM
     Route: 065
     Dates: start: 20180722
  40. EDOXABAN TOXILATE HYDRATE [Concomitant]
     Indication: ATRIAL FIBRILLATION
     Route: 065
     Dates: start: 20181127

REACTIONS (5)
  - Cerebral infarction [Fatal]
  - Septic shock [Recovered/Resolved]
  - Cardiac failure [Recovering/Resolving]
  - Enterococcal bacteraemia [Recovered/Resolved]
  - Febrile neutropenia [Recovered/Resolved]

NARRATIVE: CASE EVENT DATE: 20180724
